FAERS Safety Report 11195820 (Version 2)
Quarter: 2015Q3

REPORT INFORMATION
  Report Type: Spontaneous
  Country: US (occurrence: US)
  Receive Date: 20150617
  Receipt Date: 20150930
  Transmission Date: 20151125
  Serious: Yes (Death, Hospitalization)
  Sender: FDA-Public Use
  Company Number: US-ENDO PHARMACEUTICALS INC.-201410211

PATIENT
  Age: 45 Year
  Sex: Male
  Weight: 172.52 kg

DRUGS (2)
  1. TESTIM [Suspect]
     Active Substance: TESTOSTERONE
     Indication: ANDROGEN REPLACEMENT THERAPY
     Route: 062
  2. TESTIM [Suspect]
     Active Substance: TESTOSTERONE
     Indication: HYPOGONADISM

REACTIONS (6)
  - Pulmonary embolism [Unknown]
  - Retinal artery occlusion [Unknown]
  - Myocardial infarction [Fatal]
  - Deep vein thrombosis [Unknown]
  - Myocardial infarction [Fatal]
  - Carotid artery stenosis [Unknown]

NARRATIVE: CASE EVENT DATE: 20110712
